FAERS Safety Report 5954766-X (Version None)
Quarter: 2008Q4

REPORT INFORMATION
  Report Type: 
  Country: None (occurrence: None)
  Receive Date: 20081113
  Receipt Date: 20081104
  Transmission Date: 20090506
  Serious: Yes (Life-Threatening, Hospitalization)
  Sender: FDA-Public Use
  Company Number: GXKR2008GB04280

PATIENT
  Age: 74 Year
  Sex: Male

DRUGS (11)
  1. ASPIRIN [Suspect]
     Indication: ACUTE CORONARY SYNDROME
     Dosage: 75 MG, QD, UNKNOWN
     Dates: start: 20000101, end: 20080413
  2. AVANDAMET [Suspect]
     Dosage: 1 DF, BID
     Dates: start: 20041001, end: 20080412
  3. ENOXAPARIN SODIUM [Suspect]
     Indication: ACUTE CORONARY SYNDROME
     Dosage: 1 MG/KG, BID, SUBCUTANEOUS
     Route: 058
     Dates: start: 20080412, end: 20080413
  4. CLOPIDOGREL [Suspect]
     Indication: ACUTE CORONARY SYNDROME
     Dates: start: 20080412, end: 20080413
  5. ETORICOXIB (ETORICOXIB) UNKNOWN [Suspect]
     Indication: GOUT
     Dosage: 120 MG, UNKNOWN
     Dates: start: 20080407, end: 20080412
  6. AMLODIPINE [Concomitant]
  7. BENDROFLUAZIDE (BENDROFLUMETHIAZIDE) [Concomitant]
  8. CANDESARTAN CILEXETIL [Concomitant]
  9. FERROUS SULFATE TAB [Concomitant]
  10. FUROSEMIDE [Concomitant]
  11. SALBUTAMOL (SALBUTAMOL) [Concomitant]

REACTIONS (14)
  - ATRIAL FIBRILLATION [None]
  - CARDIAC FAILURE CONGESTIVE [None]
  - CONVULSION [None]
  - EPSTEIN-BARR VIRUS ASSOCIATED LYMPHOPROLIFERATIVE DISORDER [None]
  - FLUID RETENTION [None]
  - GASTRIC ULCER [None]
  - GASTROINTESTINAL HAEMORRHAGE [None]
  - HAEMATEMESIS [None]
  - HODGKIN'S DISEASE [None]
  - OEDEMA PERIPHERAL [None]
  - PERICARDIAL EFFUSION [None]
  - PERICARDITIS [None]
  - PLEURAL EFFUSION [None]
  - RENAL FAILURE ACUTE [None]
